FAERS Safety Report 25604570 (Version 1)
Quarter: 2025Q3

REPORT INFORMATION
  Report Type: Spontaneous
  Country: JP (occurrence: JP)
  Receive Date: 20250725
  Receipt Date: 20250725
  Transmission Date: 20251020
  Serious: Yes (Death)
  Sender: MERCK SHARP & DOHME LLC
  Company Number: JP-009507513-2312273

PATIENT
  Age: 9 Decade
  Sex: Female

DRUGS (2)
  1. KEYTRUDA [Suspect]
     Active Substance: PEMBROLIZUMAB
     Indication: Renal cell carcinoma
     Route: 065
     Dates: start: 2025
  2. LENVIMA [Suspect]
     Active Substance: LENVATINIB
     Indication: Renal cell carcinoma
     Route: 048
     Dates: start: 20250306, end: 20250410

REACTIONS (2)
  - Interstitial lung disease [Fatal]
  - Hypertension [Unknown]

NARRATIVE: CASE EVENT DATE: 20250101
